FAERS Safety Report 8763948 (Version 1)
Quarter: 2012Q4

REPORT INFORMATION
  Report Type: Spontaneous
  Country: US (occurrence: None)
  Receive Date: 20120831
  Receipt Date: 20120831
  Transmission Date: 20130627
  Serious: Yes (Hospitalization)
  Sender: FDA-Public Use
  Company Number: None

PATIENT
  Age: 64 Year
  Sex: Male
  Weight: 71.8 kg

DRUGS (1)
  1. RITUXIMAB [Suspect]
     Route: 042
     Dates: start: 20120509, end: 20120509

REACTIONS (2)
  - Sinus tachycardia [None]
  - Nausea [None]
